FAERS Safety Report 11052115 (Version 1)
Quarter: 2015Q2

REPORT INFORMATION
  Report Type: Spontaneous
  Country: US (occurrence: US)
  Receive Date: 20150421
  Receipt Date: 20150421
  Transmission Date: 20150821
  Serious: Yes (Other)
  Sender: FDA-Public Use
  Company Number: US-CIPLA LTD.-2015US03208

PATIENT

DRUGS (5)
  1. MESNA. [Suspect]
     Active Substance: MESNA
     Indication: HODGKIN^S DISEASE RECURRENT
     Dosage: 5000MG/M2 CONTINUOUS INFUSION OVER 24 H, DAYS 1 AND 2
     Route: 065
  2. ETOPOSIDE. [Suspect]
     Active Substance: ETOPOSIDE
     Indication: HODGKIN^S DISEASE RECURRENT
     Dosage: THREE DOSES OF 200 MG/M2 EVERY 12 H, DAY 1
     Route: 065
  3. BRENTUXIMAB VEDOTIN [Suspect]
     Active Substance: BRENTUXIMAB VEDOTIN
     Indication: HODGKIN^S DISEASE RECURRENT
     Dosage: WEEKLY INFUSIONS OF 1.2 MG/KG ON DAYS 1, 8, AND 15 FOR TWO 28 DAY CYCLES
     Route: 065
  4. CARBOPLATIN. [Suspect]
     Active Substance: CARBOPLATIN
     Indication: HODGKIN^S DISEASE RECURRENT
     Dosage: ONE DOSE  AUC 5, DAY 3
     Route: 065
  5. IFOSFAMIDE. [Suspect]
     Active Substance: IFOSFAMIDE
     Indication: HODGKIN^S DISEASE RECURRENT
     Dosage: TWO DOSES OF 5000 MG/M2 CONTINUOUS INFUSION OVER 24 H, DAYS 1 AND 2
     Route: 065

REACTIONS (1)
  - Skin infection [Unknown]
